FAERS Safety Report 25617518 (Version 1)
Quarter: 2025Q3

REPORT INFORMATION
  Report Type: Report from Study
  Country: US (occurrence: US)
  Receive Date: 20250729
  Receipt Date: 20250729
  Transmission Date: 20251020
  Serious: Yes (Hospitalization, Other)
  Sender: BIOVITRUM
  Company Number: US-BIOVITRUM-2025-US-003410

PATIENT
  Age: 67 Year
  Sex: Female

DRUGS (1)
  1. KINERET [Suspect]
     Active Substance: ANAKINRA
     Indication: Rheumatoid arthritis
     Route: 058
     Dates: start: 20220421

REACTIONS (5)
  - Diarrhoea [Unknown]
  - Product use issue [Unknown]
  - Haematemesis [Unknown]
  - Urinary tract infection [Unknown]
  - Alopecia [Unknown]
